FAERS Safety Report 7208985-5 (Version None)
Quarter: 2011Q1

REPORT INFORMATION
  Report Type: 
  Country: None (occurrence: None)
  Receive Date: 20110104
  Receipt Date: 20101230
  Transmission Date: 20110831
  Serious: Yes (Hospitalization)
  Sender: FDA-Public Use
  Company Number: FR-SANOFI-AVENTIS-2010SA078586

PATIENT
  Age: 36 Year
  Sex: Female

DRUGS (6)
  1. CELEBREX [Concomitant]
     Route: 048
     Dates: end: 20101126
  2. EUPANTOL [Concomitant]
     Route: 048
     Dates: end: 20101126
  3. KETUM [Concomitant]
     Dates: start: 20101101, end: 20101126
  4. OROCAL D(3) [Concomitant]
     Route: 048
     Dates: end: 20101126
  5. ARAVA [Suspect]
     Indication: RHEUMATOID ARTHRITIS
     Route: 048
     Dates: end: 20101126
  6. SALAZOPYRINE [Suspect]
     Indication: RHEUMATOID ARTHRITIS
     Route: 048
     Dates: start: 20100601, end: 20101126

REACTIONS (1)
  - BONE MARROW FAILURE [None]
